FAERS Safety Report 18176646 (Version 2)
Quarter: 2020Q3

REPORT INFORMATION
  Report Type: Spontaneous
  Country: US (occurrence: US)
  Receive Date: 20200820
  Receipt Date: 20200825
  Transmission Date: 20201103
  Serious: Yes (Other)
  Sender: FDA-Public Use
  Company Number: US-FRESENIUS KABI-FK202008502

PATIENT

DRUGS (1)
  1. OMEGAVEN [Suspect]
     Active Substance: FISH OIL
     Indication: PRODUCT USED FOR UNKNOWN INDICATION
     Dosage: 1G/KG/DAY
     Route: 065
     Dates: start: 2012, end: 2012

REACTIONS (2)
  - Septic coagulopathy [Unknown]
  - Haemorrhage [Unknown]

NARRATIVE: CASE EVENT DATE: 2012
